FAERS Safety Report 5090509-2 (Version None)
Quarter: 2006Q3

REPORT INFORMATION
  Report Type: 
  Country: None (occurrence: None)
  Receive Date: 20060828
  Receipt Date: 20060519
  Transmission Date: 20061208
  Serious: Yes (Other)
  Sender: FDA-Public Use
  Company Number: US-GLAXOSMITHKLINE-A0606339A

PATIENT
  Sex: Male

DRUGS (2)
  1. WELLBUTRIN XL [Suspect]
     Indication: DEPRESSION
     Dosage: 450MG PER DAY
     Route: 048
     Dates: start: 20060401, end: 20060501
  2. EFFEXOR [Concomitant]
     Dates: end: 20060513

REACTIONS (5)
  - ANOREXIA [None]
  - ASTHENIA [None]
  - HALLUCINATION [None]
  - TINNITUS [None]
  - TREMOR [None]
